FAERS Safety Report 19941830 (Version 1)
Quarter: 2021Q4

REPORT INFORMATION
  Report Type: Spontaneous
  Country: FR (occurrence: FR)
  Receive Date: 20211012
  Receipt Date: 20211012
  Transmission Date: 20220303
  Serious: Yes (Hospitalization)
  Sender: FDA-Public Use
  Company Number: None

PATIENT
  Age: 88 Year
  Sex: Male
  Weight: 66 kg

DRUGS (1)
  1. GILOTRIF [Suspect]
     Active Substance: AFATINIB
     Indication: Lung adenocarcinoma
     Dosage: UNKNOWN
     Route: 048
     Dates: start: 20210408, end: 20210426

REACTIONS (2)
  - Diarrhoea [Unknown]
  - Hepatic cytolysis [Unknown]

NARRATIVE: CASE EVENT DATE: 20210425
